FAERS Safety Report 8959349 (Version 1)
Quarter: 2012Q4

REPORT INFORMATION
  Report Type: 
  Country: GB (occurrence: GB)
  Receive Date: 20121212
  Receipt Date: 20121212
  Transmission Date: 20130627
  Serious: Yes (Life-Threatening, Disabling)
  Sender: FDA-Public Use
  Company Number: GB-ROCHE-1165943

PATIENT
  Age: 16 Year
  Sex: Male
  Weight: 75 kg

DRUGS (1)
  1. ROACCUTANE [Suspect]
     Indication: ACNE
     Route: 048
     Dates: start: 201209, end: 201210

REACTIONS (2)
  - Depression [Recovered/Resolved]
  - Suicidal ideation [Recovered/Resolved with Sequelae]
